FAERS Safety Report 4783501-6 (Version None)
Quarter: 2005Q3

REPORT INFORMATION
  Report Type: 
  Country: None (occurrence: None)
  Receive Date: 20050928
  Receipt Date: 20050928
  Transmission Date: 20060218
  Serious: Yes (Other)
  Sender: FDA-Public Use
  Company Number: None

PATIENT
  Age: 57 Year
  Weight: 100.2449 kg

DRUGS (1)
  1. VIOXX [Suspect]
     Indication: BLOOD PRESSURE
     Dosage: 2XDAY
     Dates: start: 20020301, end: 20030201

REACTIONS (5)
  - BLOOD PRESSURE FLUCTUATION [None]
  - DISTURBANCE IN ATTENTION [None]
  - FATIGUE [None]
  - INSOMNIA [None]
  - MENTAL IMPAIRMENT [None]
